FAERS Safety Report 9693474 (Version 1)
Quarter: 2013Q4

REPORT INFORMATION
  Report Type: Report from Study
  Country: NL (occurrence: NL)
  Receive Date: 20131118
  Receipt Date: 20131118
  Transmission Date: 20140711
  Serious: Yes (Death)
  Sender: FDA-Public Use
  Company Number: NL-ABBVIE-13P-114-1170338-00

PATIENT
  Age: 77 Year
  Sex: Male

DRUGS (6)
  1. LUCRIN DEPOT [Suspect]
     Indication: PROSTATE CANCER
     Route: 058
     Dates: start: 20101104, end: 20131021
  2. ENALAPRIL/HYDROCHLOORTHIAZIDE [Concomitant]
     Indication: HYPERTENSION
     Route: 048
     Dates: start: 20100804, end: 20131021
  3. FENPROCOUMON [Concomitant]
     Indication: THROMBOSIS
     Route: 048
     Dates: start: 20120927, end: 20131021
  4. PANTOPRAZOL EC [Concomitant]
     Indication: GASTRIC DISORDER
     Route: 048
     Dates: start: 20120927, end: 20131021
  5. PARACETAMOL [Concomitant]
     Indication: PAIN
     Route: 048
     Dates: start: 20130307, end: 20131021
  6. TRAMADOL [Concomitant]
     Indication: PAIN
     Route: 048
     Dates: start: 20130307, end: 20131021

REACTIONS (1)
  - Death [Fatal]
